FAERS Safety Report 19991962 (Version 1)
Quarter: 2021Q4

REPORT INFORMATION
  Report Type: Report from Study
  Country: UA (occurrence: UA)
  Receive Date: 20211025
  Receipt Date: 20211025
  Transmission Date: 20220303
  Serious: Yes (Hospitalization, Other)
  Sender: FDA-Public Use
  Company Number: UA-CELGENE-UKR-20190506538

PATIENT
  Age: 30 Year
  Sex: Male

DRUGS (3)
  1. OZANIMOD [Suspect]
     Active Substance: OZANIMOD
     Indication: Multiple sclerosis
     Dosage: 1 MILLIGRAM
     Route: 048
     Dates: start: 20161202, end: 20190902
  2. CLOMIPRAMINE [Concomitant]
     Active Substance: CLOMIPRAMINE
     Indication: Anxiety disorder
     Dosage: 12.5 MILLIGRAM
     Route: 048
     Dates: start: 20161128
  3. gidazepam [Concomitant]
     Indication: Anxiety disorder
     Dosage: 20 MILLIGRAM
     Route: 048

REACTIONS (2)
  - Abdominal wall infection [Recovered/Resolved]
  - Dermal cyst [Recovered/Resolved]

NARRATIVE: CASE EVENT DATE: 20190510
